FAERS Safety Report 9287695 (Version 1)
Quarter: 2013Q2

REPORT INFORMATION
  Report Type: Report from Study
  Country: CA (occurrence: CA)
  Receive Date: 20130514
  Receipt Date: 20130514
  Transmission Date: 20140414
  Serious: Yes (Other)
  Sender: FDA-Public Use
  Company Number: CA-JNJFOC-20130505345

PATIENT
  Sex: Female

DRUGS (8)
  1. REMICADE [Suspect]
     Indication: CROHN^S DISEASE
     Route: 042
     Dates: start: 20120827
  2. CIPRO [Concomitant]
     Route: 065
  3. FLAGYL [Concomitant]
     Route: 065
  4. NEXIUM [Concomitant]
     Route: 065
  5. TACROLIMUS [Concomitant]
     Route: 065
  6. VITAMIN D [Concomitant]
     Route: 065
  7. MYFORTIC [Concomitant]
     Route: 065
  8. POTASSIUM CHLORIDE [Concomitant]
     Route: 065

REACTIONS (2)
  - Herpes zoster [Not Recovered/Not Resolved]
  - Surgery [Unknown]
